FAERS Safety Report 20381937 (Version 1)
Quarter: 2022Q1

REPORT INFORMATION
  Report Type: Spontaneous
  Country: US (occurrence: US)
  Receive Date: 20220127
  Receipt Date: 20220127
  Transmission Date: 20220424
  Serious: No
  Sender: FDA-Public Use
  Company Number: US-BIOGEN-2019BI00690308

PATIENT
  Age: 29 Year
  Sex: Male

DRUGS (2)
  1. TECFIDERA [Suspect]
     Active Substance: DIMETHYL FUMARATE
     Indication: Multiple sclerosis
     Dosage: (STARTER DOSE)  120MG CAPSULE AT BEDTIME
     Route: 050
     Dates: start: 20190121
  2. TECFIDERA [Suspect]
     Active Substance: DIMETHYL FUMARATE
     Route: 050
     Dates: start: 20190123

REACTIONS (4)
  - Product dose omission in error [Recovered/Resolved]
  - Hot flush [Recovered/Resolved]
  - Flushing [Unknown]
  - Abdominal discomfort [Unknown]

NARRATIVE: CASE EVENT DATE: 20190220
